FAERS Safety Report 17024646 (Version 1)
Quarter: 2019Q4

REPORT INFORMATION
  Report Type: Spontaneous
  Country: US (occurrence: US)
  Receive Date: 20191113
  Receipt Date: 20191113
  Transmission Date: 20200122
  Serious: No
  Sender: FDA-Public Use
  Company Number: US-STRIDES ARCOLAB LIMITED-2019SP008008

PATIENT
  Age: 48 Year
  Sex: Male

DRUGS (8)
  1. NYSTATIN AND TRIAMCINOLONE ACETONIDE [Suspect]
     Active Substance: NYSTATIN\TRIAMCINOLONE ACETONIDE
     Indication: SCROTAL ERYTHEMA
     Dosage: UNK
     Route: 061
  2. CARVEDILOL. [Suspect]
     Active Substance: CARVEDILOL
     Indication: SCROTAL ERYTHEMA
     Dosage: 6.25 MG, DAILY
     Route: 065
  3. CARVEDILOL. [Suspect]
     Active Substance: CARVEDILOL
     Indication: HYPERTENSION
  4. MUPIROCIN. [Suspect]
     Active Substance: MUPIROCIN
     Indication: SCROTAL ERYTHEMA
     Dosage: UNK
     Route: 061
  5. MINOCYCLINE [Suspect]
     Active Substance: MINOCYCLINE HYDROCHLORIDE
     Indication: SCROTAL ERYTHEMA
     Dosage: UNK
     Route: 065
  6. TIMOLOL. [Concomitant]
     Active Substance: TIMOLOL
     Indication: SCROTAL ERYTHEMA
     Dosage: UNK, BID
     Route: 065
  7. FLUCONAZOLE. [Suspect]
     Active Substance: FLUCONAZOLE
     Indication: SCROTAL ERYTHEMA
     Dosage: 200 MG, ONCE WEEKLY
     Route: 065
  8. TACROLIMUS. [Suspect]
     Active Substance: TACROLIMUS
     Indication: SCROTAL ERYTHEMA
     Dosage: UNK
     Route: 065

REACTIONS (1)
  - Drug ineffective [Unknown]
